FAERS Safety Report 10142926 (Version 1)
Quarter: 2014Q2

REPORT INFORMATION
  Report Type: Spontaneous
  Country: US (occurrence: None)
  Receive Date: 20140428
  Receipt Date: 20140428
  Transmission Date: 20141212
  Serious: Yes (Death, Hospitalization)
  Sender: FDA-Public Use
  Company Number: 153002

PATIENT
  Age: 39 Year
  Sex: Male

DRUGS (1)
  1. VALPROATE SODIUM [Suspect]

REACTIONS (20)
  - Vanishing bile duct syndrome [None]
  - Confusional state [None]
  - Sinusitis [None]
  - Jaundice [None]
  - Rales [None]
  - Renal failure acute [None]
  - Pancytopenia [None]
  - Hyperbilirubinaemia [None]
  - Blood alkaline phosphatase increased [None]
  - Aspartate aminotransferase increased [None]
  - Alanine aminotransferase increased [None]
  - Pancreatitis [None]
  - Hepatomegaly [None]
  - Pneumonia [None]
  - Metabolic acidosis [None]
  - Azotaemia [None]
  - Cholestasis [None]
  - Epstein-Barr virus test positive [None]
  - Cytomegalovirus test positive [None]
  - Multi-organ failure [None]
